FAERS Safety Report 10253000 (Version 1)
Quarter: 2014Q2

REPORT INFORMATION
  Report Type: Spontaneous
  Country: US (occurrence: US)
  Receive Date: 20140623
  Receipt Date: 20140623
  Transmission Date: 20141212
  Serious: Yes (Other)
  Sender: FDA-Public Use
  Company Number: US-BAYER-2014-092590

PATIENT
  Sex: Female

DRUGS (2)
  1. MIRENA [Suspect]
     Dosage: UNK
     Dates: start: 201308
  2. DESOGESTREL W/ETHINYLESTRADIOL [Concomitant]
     Indication: CONTRACEPTION

REACTIONS (8)
  - Device dislocation [None]
  - Device dislocation [None]
  - Genital haemorrhage [None]
  - Abdominal pain lower [None]
  - Back pain [None]
  - Abdominal pain upper [None]
  - Abdominal tenderness [None]
  - Coital bleeding [None]
